FAERS Safety Report 9580443 (Version 1)
Quarter: 2013Q3

REPORT INFORMATION
  Report Type: Spontaneous
  Country: US (occurrence: None)
  Receive Date: 20130916
  Receipt Date: 20130916
  Transmission Date: 20140515
  Serious: Yes (Death)
  Sender: FDA-Public Use
  Company Number: JPI-P-026975

PATIENT
  Age: 52 Year
  Sex: Female
  Weight: 66.68 kg

DRUGS (5)
  1. XYREM [Suspect]
     Indication: CATAPLEXY
     Route: 048
     Dates: start: 20120628, end: 2012
  2. DULOXETINE HYDROCHLORIDE [Concomitant]
  3. SUMATRIPTAN SUCCINATE [Concomitant]
  4. NORTRIPTYLINE HCL [Concomitant]
  5. LAMOTRIGINE [Concomitant]

REACTIONS (1)
  - Completed suicide [None]
